FAERS Safety Report 19205657 (Version 1)
Quarter: 2021Q2

REPORT INFORMATION
  Report Type: Spontaneous
  Country: US (occurrence: US)
  Receive Date: 20210503
  Receipt Date: 20210503
  Transmission Date: 20210717
  Serious: No
  Sender: FDA-Public Use
  Company Number: US-FARMAPROD-202101-0120

PATIENT
  Age: 61 Year
  Sex: Female

DRUGS (30)
  1. DICLOFENAC SODIUM. [Concomitant]
     Active Substance: DICLOFENAC SODIUM
  2. FAMCICLOVIR. [Concomitant]
     Active Substance: FAMCICLOVIR
  3. LUTEIN/ZEAXANTHIN [Concomitant]
  4. FEVERFEW EXTRACT [Concomitant]
     Dosage: 4:1
  5. ALPHA LIPOIC ACID [Concomitant]
     Active Substance: .ALPHA.-LIPOIC ACID
  6. KAVA KAVA [Concomitant]
     Active Substance: PIPER METHYSTICUM ROOT
  7. L?THEANINE [Concomitant]
     Active Substance: DIETARY SUPPLEMENT
  8. MELATONIN [Concomitant]
     Active Substance: MELATONIN
  9. OXERVATE [Suspect]
     Active Substance: CENEGERMIN-BKBJ
     Indication: NEUROTROPHIC KERATOPATHY
     Route: 047
     Dates: start: 20210113
  10. BETA CAROTENE. [Concomitant]
     Active Substance: BETA CAROTENE
  11. FLONASE ALLERGY RELIEF [Concomitant]
     Active Substance: FLUTICASONE PROPIONATE
  12. VITAMIN E [Concomitant]
     Active Substance: .ALPHA.-TOCOPHEROL
  13. OMEGA 3?6?9 [Concomitant]
     Active Substance: FISH OIL
  14. ESTRADIOL. [Concomitant]
     Active Substance: ESTRADIOL
  15. MONTELUKAST SODIUM. [Concomitant]
     Active Substance: MONTELUKAST SODIUM
  16. VITAMINE C [Concomitant]
     Active Substance: ASCORBIC ACID
  17. GABAPENTIN. [Concomitant]
     Active Substance: GABAPENTIN
  18. SENNA?S [Concomitant]
     Active Substance: DOCUSATE SODIUM\SENNOSIDES
     Dosage: 8.6 MG?50 MG
  19. DOCUSATE CALCIUM. [Concomitant]
     Active Substance: DOCUSATE CALCIUM
  20. VALERIAN [Concomitant]
     Active Substance: VALERIAN
  21. TYLENOL [Concomitant]
     Active Substance: ACETAMINOPHEN
  22. GLUCOSAMINE/CHONDROITIN/MSM [Concomitant]
  23. COENZYME Q10 [Concomitant]
     Active Substance: DIETARY SUPPLEMENT\UBIDECARENONE
  24. THERATEARS [Concomitant]
     Active Substance: CARBOXYMETHYLCELLULOSE SODIUM
  25. ZINC. [Concomitant]
     Active Substance: ZINC
  26. TAURINE [Concomitant]
     Active Substance: TAURINE
  27. ASPERCREME LIDOCAINE [Concomitant]
  28. VITAMIN D3 [Concomitant]
     Active Substance: CHOLECALCIFEROL
  29. MAGNESIUM OXIDE. [Concomitant]
     Active Substance: MAGNESIUM OXIDE
  30. VITAMIN B COMPLEX [Concomitant]
     Active Substance: CYANOCOBALAMIN\DEXPANTHENOL\NIACINAMIDE\PYRIDOXINE HYDROCHLORIDE\RIBOFLAVIN 5^-PHOSPHATE SODIUM\THIAMINE HYDROCHLORIDE\VITAMIN B COMPLEX

REACTIONS (3)
  - Headache [Unknown]
  - Photophobia [Unknown]
  - Eye pain [Unknown]

NARRATIVE: CASE EVENT DATE: 20210120
